FAERS Safety Report 21592798 (Version 1)
Quarter: 2022Q4

REPORT INFORMATION
  Report Type: Other
  Country: US (occurrence: None)
  Receive Date: 20221114
  Receipt Date: 20221114
  Transmission Date: 20230113
  Serious: No
  Sender: FDA-Public Use
  Company Number: US-ROCHE-2354648

PATIENT
  Sex: Female
  Weight: 122.58 kg

DRUGS (1)
  1. OCREVUS [Suspect]
     Active Substance: OCRELIZUMAB
     Indication: Multiple sclerosis relapse
     Dosage: TWO 300MG DOSES AND THEN 600MG EVERY 6 MONTHS ;ONGOING: YES
     Route: 042
     Dates: start: 20190626

REACTIONS (10)
  - Sinusitis [Recovering/Resolving]
  - Immunodeficiency [Recovering/Resolving]
  - Rhinorrhoea [Recovering/Resolving]
  - Nasopharyngitis [Recovering/Resolving]
  - Oropharyngeal pain [Recovering/Resolving]
  - Headache [Recovering/Resolving]
  - Toothache [Recovering/Resolving]
  - Neck pain [Recovering/Resolving]
  - Ear pain [Recovering/Resolving]
  - COVID-19 [Unknown]

NARRATIVE: CASE EVENT DATE: 20190626
